FAERS Safety Report 19222361 (Version 1)
Quarter: 2021Q2

REPORT INFORMATION
  Report Type: Report from Study
  Country: None (occurrence: US)
  Receive Date: 20210506
  Receipt Date: 20210506
  Transmission Date: 20210717
  Serious: Yes (Hospitalization)
  Sender: FDA-Public Use
  Company Number: US-ABBVIE-21K-163-3889525-00

PATIENT
  Sex: Female

DRUGS (1)
  1. RINVOQ [Suspect]
     Active Substance: UPADACITINIB
     Indication: RHEUMATOID ARTHRITIS
     Route: 048
     Dates: start: 20210407

REACTIONS (8)
  - Herpes zoster [Unknown]
  - Intervertebral disc disorder [Unknown]
  - Spinal pain [Unknown]
  - Thrombosis [Unknown]
  - Musculoskeletal disorder [Unknown]
  - Finger deformity [Unknown]
  - Arthritis [Unknown]
  - Dyspnoea [Unknown]

NARRATIVE: CASE EVENT DATE: 2021
